FAERS Safety Report 16817279 (Version 3)
Quarter: 2019Q4

REPORT INFORMATION
  Report Type: Spontaneous
  Country: US (occurrence: US)
  Receive Date: 20190917
  Receipt Date: 20191206
  Transmission Date: 20200122
  Serious: Yes (Hospitalization, Other)
  Sender: FDA-Public Use
  Company Number: US-CATALYST PHARMACEUTICALS, INC-2019CAT00390

PATIENT
  Age: 39 Year
  Sex: Female
  Weight: 72.11 kg

DRUGS (3)
  1. FIRDAPSE [Suspect]
     Active Substance: AMIFAMPRIDINE
     Dosage: 20 MG, 4X/DAY
     Route: 048
     Dates: start: 201908
  2. FIRDAPSE [Suspect]
     Active Substance: AMIFAMPRIDINE
     Indication: MYASTHENIA GRAVIS
     Dosage: 65 MG, 1X/DAY
     Route: 048
     Dates: start: 201908, end: 2019
  3. UNSPECIFIED PRODUCTS (ABOUT 15) [Concomitant]

REACTIONS (15)
  - Somnolence [Not Recovered/Not Resolved]
  - Off label use [Not Recovered/Not Resolved]
  - Hospitalisation [Recovered/Resolved]
  - Klebsiella infection [Unknown]
  - Bacteriuria [Unknown]
  - Sepsis [Unknown]
  - Neuropathy peripheral [Not Recovered/Not Resolved]
  - Catheter site infection [Recovered/Resolved]
  - Surgery [Not Recovered/Not Resolved]
  - Peripheral coldness [Not Recovered/Not Resolved]
  - Myasthenia gravis [Not Recovered/Not Resolved]
  - Stress [Unknown]
  - Infection [Unknown]
  - Feeling cold [Not Recovered/Not Resolved]
  - Fatigue [Not Recovered/Not Resolved]

NARRATIVE: CASE EVENT DATE: 2019
